FAERS Safety Report 4366158-8 (Version None)
Quarter: 2004Q2

REPORT INFORMATION
  Report Type: 
  Country: None (occurrence: None)
  Receive Date: 20040524
  Receipt Date: 20040510
  Transmission Date: 20050107
  Serious: No
  Sender: FDA-Public Use
  Company Number: 04P-056-0258403-00

PATIENT
  Sex: Male

DRUGS (4)
  1. DEPAKINE SOLUTION (SODIUM VALPROATE ) (SODIUM VALPROATE) (SODIUM VALPR [Suspect]
     Indication: EPILEPSY
     Dosage: SEE IMAGE
     Dates: start: 20040101, end: 20040101
  2. DEPAKINE SOLUTION (SODIUM VALPROATE ) (SODIUM VALPROATE) (SODIUM VALPR [Suspect]
     Indication: EPILEPSY
     Dosage: SEE IMAGE
     Dates: start: 20040101, end: 20040401
  3. DEPAKINE SOLUTION (SODIUM VALPROATE ) (SODIUM VALPROATE) (SODIUM VALPR [Suspect]
     Indication: EPILEPSY
     Dosage: SEE IMAGE
     Dates: start: 20040401
  4. PRIMAXIN [Suspect]
     Indication: INFECTION
     Dosage: INTRAVENOUIS
     Route: 042
     Dates: start: 20040401, end: 20040401

REACTIONS (5)
  - ANTICONVULSANT DRUG LEVEL DECREASED [None]
  - CONVULSION [None]
  - DRUG INEFFECTIVE [None]
  - DRUG INTERACTION [None]
  - INFECTION [None]
